FAERS Safety Report 26174067 (Version 1)
Quarter: 2025Q4

REPORT INFORMATION
  Report Type: Spontaneous
  Country: US (occurrence: US)
  Receive Date: 20251218
  Receipt Date: 20251218
  Transmission Date: 20260118
  Serious: No
  Sender: JOHNSON AND JOHNSON
  Company Number: US-JNJFOC-20251223063

PATIENT
  Age: 47 Year

DRUGS (2)
  1. SPRAVATO [Suspect]
     Active Substance: ESKETAMINE
     Indication: Major depression
     Route: 045
  2. SPRAVATO [Suspect]
     Active Substance: ESKETAMINE
     Indication: Anxiety

REACTIONS (7)
  - Feeling abnormal [Unknown]
  - Depressed mood [Unknown]
  - Tearfulness [Unknown]
  - Product dose omission issue [Unknown]
  - Confusional state [Unknown]
  - Frustration tolerance decreased [Unknown]
  - Stress [Unknown]

NARRATIVE: CASE EVENT DATE: 20251216
